FAERS Safety Report 10158823 (Version 1)
Quarter: 2014Q2

REPORT INFORMATION
  Report Type: Spontaneous
  Country: US (occurrence: US)
  Receive Date: 20140508
  Receipt Date: 20140508
  Transmission Date: 20141212
  Serious: No
  Sender: FDA-Public Use
  Company Number: US-BIOGENIDEC-2014BI038874

PATIENT
  Age: 70 Year
  Sex: Female

DRUGS (13)
  1. TECFIDERA [Suspect]
     Indication: MULTIPLE SCLEROSIS
     Route: 048
  2. BACLOFEN [Concomitant]
  3. CHOLECALCIFEROL [Concomitant]
  4. CRANBERRY [Concomitant]
  5. FOLIC ACID [Concomitant]
  6. GLUCOSAMINE HCL [Concomitant]
  7. HYDROCODONE-ACETAMINOPHEN [Concomitant]
  8. INDOMETHACIN [Concomitant]
  9. NALTREXONE [Concomitant]
  10. OMEGA 3 [Concomitant]
  11. VALIUM [Concomitant]
  12. VITAMIN B-12 [Concomitant]
  13. PROBIOTIC [Concomitant]

REACTIONS (1)
  - Inflammation [Unknown]
